FAERS Safety Report 8791738 (Version 6)
Quarter: 2013Q1

REPORT INFORMATION
  Report Type: Report from Study
  Country: US (occurrence: US)
  Receive Date: 20120918
  Receipt Date: 20130122
  Transmission Date: 20140127
  Serious: Yes (Hospitalization)
  Sender: FDA-Public Use
  Company Number: US-PFIZER INC-2012227136

PATIENT
  Age: 10 Year
  Sex: Male

DRUGS (36)
  1. METHOTREXATE SODIUM [Suspect]
     Indication: ACUTE LYMPHOCYTIC LEUKAEMIA
     Dosage: UNK
     Route: 037
     Dates: start: 20120731, end: 20120731
  2. METHOTREXATE SODIUM [Suspect]
     Dosage: 6.5 G, 1 DAY
     Route: 042
     Dates: start: 20120731, end: 20120801
  3. METHOTREXATE SODIUM [Suspect]
     Dosage: UNK
     Route: 037
     Dates: start: 20120824, end: 20120824
  4. METHOTREXATE SODIUM [Suspect]
     Dosage: DAY 1 AT 12 MG
     Route: 037
     Dates: start: 20120911, end: 20120911
  5. METHOTREXATE SODIUM [Suspect]
     Dosage: UNK
     Route: 037
     Dates: start: 20121101
  6. CYTARABINE [Suspect]
     Indication: ACUTE LYMPHOCYTIC LEUKAEMIA
     Dosage: UNK
     Route: 037
     Dates: start: 20120731, end: 20120731
  7. CYTARABINE [Suspect]
     Dosage: 2.6 G, EVERY 12 WEEKS FOR 4 TIMES
     Route: 042
     Dates: start: 20120821, end: 20120823
  8. CYTARABINE [Suspect]
     Dosage: UNK
     Route: 037
     Dates: start: 20120824, end: 20120824
  9. CYTARABINE [Suspect]
     Dosage: UNK
     Dates: start: 20121101, end: 20121104
  10. ETOPOSIDE [Suspect]
     Indication: ACUTE LYMPHOCYTIC LEUKAEMIA
     Dosage: UNK
     Dates: start: 20120823, end: 20120825
  11. DEXAMETHASONE SODIUM PHOSPHATE [Suspect]
     Indication: ACUTE LYMPHOCYTIC LEUKAEMIA
     Dosage: UNK
     Dates: start: 20120731, end: 20120804
  12. DEXAMETHASONE SODIUM PHOSPHATE [Suspect]
     Dosage: UNK
     Dates: start: 20120821, end: 20120825
  13. DEXAMETHASONE SODIUM PHOSPHATE [Suspect]
     Dosage: UNK
     Route: 048
     Dates: start: 20120915
  14. MORPHINE SULFATE [Suspect]
     Dosage: UNK
  15. DASATINIB [Suspect]
     Indication: ACUTE LYMPHOCYTIC LEUKAEMIA
     Dosage: 80 MG, DAILY; MOST RECENT DOSE ON 19NOV2012
     Route: 048
     Dates: start: 20120604, end: 20121119
  16. VINCRISTINE [Suspect]
     Indication: ACUTE LYMPHOCYTIC LEUKAEMIA
     Dosage: UNK
     Dates: start: 20120801, end: 20120805
  17. DAUNORUBICIN [Suspect]
     Indication: ACUTE LYMPHOCYTIC LEUKAEMIA
     Dosage: ROUTE: UNK
     Dates: start: 20120804, end: 20120804
  18. PEGASPARGASE [Suspect]
     Indication: ACUTE LYMPHOCYTIC LEUKAEMIA
     Dosage: UNK
     Dates: start: 20120808, end: 20120808
  19. PEGASPARGASE [Suspect]
     Dosage: UNK
     Dates: start: 20120826, end: 20120826
  20. HYDROCORTISONE [Suspect]
     Dosage: ROUTE: INTH
     Route: 037
     Dates: start: 20120731, end: 20120731
  21. CYCLOPHOSPHAMIDE [Suspect]
     Dosage: UNK
     Dates: start: 20121030, end: 20121030
  22. LORAZEPAM [Concomitant]
     Dosage: UNK
     Dates: start: 20120413
  23. ONDANSETRON [Concomitant]
     Dosage: UNK
     Dates: start: 20120413
  24. OSCAL [Concomitant]
     Dosage: UNK
     Dates: start: 20120417
  25. VITAMIN D [Concomitant]
     Dosage: UNK
     Dates: start: 20120417
  26. POLYETHYLENE GLYCOL [Concomitant]
     Dosage: UNK
     Dates: start: 20120413
  27. DRONABINOL [Concomitant]
     Dosage: UNK
     Dates: start: 20120417
  28. METOCLOPRAMIDE [Concomitant]
     Dosage: UNK
     Dates: start: 20120421
  29. SCOPOLAMINE [Concomitant]
     Dosage: UNK
     Dates: start: 20120421
  30. PERIACTIN [Concomitant]
     Dosage: UNK
     Dates: start: 20120827
  31. BACTRIM [Concomitant]
     Dosage: UNK
     Dates: start: 20120413
  32. CHLORHEXIDINE [Concomitant]
     Dosage: UNK
     Dates: start: 20120413
  33. NEUTRA-PHOS [Concomitant]
     Dosage: UNK
     Dates: start: 20120417
  34. FLUCONAZOLE [Concomitant]
     Dosage: UNK
     Dates: start: 20120413
  35. THIOGUANINE [Concomitant]
     Dosage: UNK
     Dates: start: 20121030, end: 20121112
  36. KEPPRA [Concomitant]
     Dosage: 250 MG, 2X/DAY
     Dates: start: 20120918

REACTIONS (8)
  - Stomatitis [Recovered/Resolved]
  - Febrile neutropenia [Recovered/Resolved]
  - Bacteraemia [Recovered/Resolved]
  - Convulsion [Recovered/Resolved]
  - Mucosal infection [Recovered/Resolved]
  - Pulmonary oedema [Recovering/Resolving]
  - Cardiac failure [Recovering/Resolving]
  - Hypokalaemia [Not Recovered/Not Resolved]
